FAERS Safety Report 18940962 (Version 1)
Quarter: 2021Q1

REPORT INFORMATION
  Report Type: Spontaneous
  Country: US (occurrence: US)
  Receive Date: 20210225
  Receipt Date: 20210225
  Transmission Date: 20210420
  Serious: No
  Sender: FDA-Public Use
  Company Number: US-MYLANLABS-2021M1010099

PATIENT
  Age: 49 Year
  Sex: Female
  Weight: 91.15 kg

DRUGS (3)
  1. LIDOCAINE PATCH [Suspect]
     Active Substance: LIDOCAINE
     Indication: BACK PAIN
  2. LIDOCAINE PATCH [Suspect]
     Active Substance: LIDOCAINE
     Indication: ARTHRALGIA
     Dosage: 5 PERCENT, TID
     Route: 003
  3. LIDOCAINE PATCH [Suspect]
     Active Substance: LIDOCAINE
     Indication: NECK PAIN

REACTIONS (4)
  - Product quality issue [Not Recovered/Not Resolved]
  - Off label use [Not Recovered/Not Resolved]
  - Wrong technique in product usage process [Not Recovered/Not Resolved]
  - Product adhesion issue [Not Recovered/Not Resolved]

NARRATIVE: CASE EVENT DATE: 202101
